FAERS Safety Report 4933026-X (Version None)
Quarter: 2006Q1

REPORT INFORMATION
  Report Type: 
  Country: None (occurrence: None)
  Receive Date: 20060301
  Receipt Date: 20060217
  Transmission Date: 20060701
  Serious: Yes (Other)
  Sender: FDA-Public Use
  Company Number: 2006025289

PATIENT
  Sex: Female
  Weight: 63.05 kg

DRUGS (11)
  1. LIPITOR [Suspect]
     Indication: FAMILIAL HYPERTRIGLYCERIDAEMIA
     Dosage: 10 MG (10 MG, 1 IN 1 D), ORAL
     Route: 048
  2. LIPITOR [Suspect]
     Indication: TYPE IIA HYPERLIPIDAEMIA
     Dosage: 10 MG (10 MG, 1 IN 1 D), ORAL
     Route: 048
  3. ASCORBIC ACID [Concomitant]
  4. GLUCOSAMINE [Concomitant]
  5. CHONDROITIN (CHONDROITIN SULFATE) [Concomitant]
  6. OMEPRAZOLE [Concomitant]
  7. DIPYRIDAMOLE [Concomitant]
  8. MAGNESIUM [Concomitant]
  9. LISINOPRIL [Concomitant]
  10. DEMEROL [Concomitant]
  11. FOLIC ACID [Concomitant]

REACTIONS (8)
  - ASTHENIA [None]
  - CARDIOVASCULAR DISORDER [None]
  - CAROTID ARTERY OCCLUSION [None]
  - DIABETES MELLITUS [None]
  - ELECTROCARDIOGRAM ABNORMAL [None]
  - FATIGUE [None]
  - MUSCULAR WEAKNESS [None]
  - THERAPY NON-RESPONDER [None]
